FAERS Safety Report 15156901 (Version 2)
Quarter: 2018Q3

REPORT INFORMATION
  Report Type: Spontaneous
  Country: DE (occurrence: DE)
  Receive Date: 20180718
  Receipt Date: 20180726
  Transmission Date: 20181010
  Serious: Yes (Hospitalization, Other)
  Sender: FDA-Public Use
  Company Number: DE-SUN PHARMACEUTICAL INDUSTRIES LTD-2018RR-178652

PATIENT
  Age: 47 Year
  Sex: Female
  Weight: 59.6 kg

DRUGS (33)
  1. BISOPROLOL [Concomitant]
     Active Substance: BISOPROLOL
     Indication: HYPERTENSION
     Route: 065
     Dates: start: 20140312, end: 20140613
  2. RAMIPRIL. [Concomitant]
     Active Substance: RAMIPRIL
     Indication: HYPERTENSION
     Route: 065
     Dates: start: 20140306, end: 20140613
  3. PANTOZOL [Concomitant]
     Active Substance: PANTOPRAZOLE SODIUM
     Dosage: ()
     Route: 065
     Dates: start: 20140125, end: 20140201
  4. NOVALGIN (METAMIZOLE SODIUM) [Concomitant]
     Active Substance: METAMIZOLE SODIUM
     Indication: PROCEDURAL PAIN
     Dosage: ()
     Route: 065
     Dates: start: 20140625, end: 20140701
  5. BEVACIZUMAB. [Suspect]
     Active Substance: BEVACIZUMAB
     Dosage: 298 MG, UNK
     Route: 042
     Dates: start: 20131108
  6. CLEXANE [Concomitant]
     Active Substance: ENOXAPARIN SODIUM
     Dosage: ()
     Route: 065
     Dates: start: 20140123, end: 20140131
  7. BROMAZANIL [Concomitant]
     Active Substance: BROMAZEPAM
     Indication: SLEEP DISORDER
     Dosage: ()
     Route: 065
     Dates: start: 20140126, end: 20140126
  8. 5?FLUOROURACIL [Concomitant]
     Active Substance: FLUOROURACIL
     Dosage: 5376 MG, UNK
     Route: 041
     Dates: start: 20131108, end: 20131110
  9. TARGIN [Concomitant]
     Active Substance: NALOXONE HYDROCHLORIDE\OXYCODONE HYDROCHLORIDE
     Indication: PROCEDURAL PAIN
     Dosage: ()
     Route: 065
     Dates: start: 20140628, end: 20140704
  10. IRINOTECAN [Suspect]
     Active Substance: IRINOTECAN
     Indication: COLORECTAL CANCER
     Dosage: 277.2 MG, UNK
     Route: 065
     Dates: start: 20131108
  11. IRINOTECAN [Suspect]
     Active Substance: IRINOTECAN
     Route: 065
     Dates: start: 20140728, end: 20140728
  12. FOLINIC ACID [Concomitant]
     Active Substance: LEUCOVORIN
     Dosage: 324 MG, UNK
     Route: 065
     Dates: start: 20131125, end: 20140414
  13. 5?FLUOROURACIL [Concomitant]
     Active Substance: FLUOROURACIL
     Indication: COLORECTAL CANCER
     Route: 041
     Dates: start: 20140714, end: 20140730
  14. 5?FLUOROURACIL [Concomitant]
     Active Substance: FLUOROURACIL
     Dosage: 5184 MG, UNK
     Route: 041
     Dates: start: 20131125, end: 20140416
  15. DIPIDOLOR [Concomitant]
     Active Substance: PIRITRAMIDE
     Indication: PROCEDURAL PAIN
     Dosage: ()
     Route: 065
     Dates: start: 20140625, end: 20140630
  16. BISOPROLOL [Concomitant]
     Active Substance: BISOPROLOL
     Route: 065
     Dates: start: 20140614, end: 20140710
  17. 5?FLUOROURACIL [Concomitant]
     Active Substance: FLUOROURACIL
     Dosage: 2592 MG, UNK
     Route: 041
     Dates: start: 20140825, end: 20140827
  18. ERYTHROCYTES [Concomitant]
     Active Substance: HUMAN RED BLOOD CELL
     Indication: SURGERY
     Dosage: ()
     Route: 065
     Dates: start: 20140625, end: 20140625
  19. BEVACIZUMAB. [Suspect]
     Active Substance: BEVACIZUMAB
     Indication: COLORECTAL CANCER METASTATIC
     Dosage: DATE OF MOST RECENT DOSE: 28/JUL/2014
     Route: 042
     Dates: start: 20140102, end: 20140825
  20. TAVOR (LORAZEPAM) [Concomitant]
     Active Substance: LORAZEPAM
     Indication: DEPRESSED MOOD
     Dosage: ()
     Route: 065
     Dates: start: 20140130, end: 20140130
  21. ROXITHROMYCIN [Concomitant]
     Active Substance: ROXITHROMYCIN
     Indication: FEBRILE INFECTION
     Dosage: ()
     Route: 065
     Dates: start: 20140124, end: 20140129
  22. TRAMAL LONG [Concomitant]
     Active Substance: TRAMADOL
     Indication: PROCEDURAL PAIN
     Dosage: ()
     Route: 065
     Dates: start: 20140704, end: 20140705
  23. OXALIPLATIN. [Suspect]
     Active Substance: OXALIPLATIN
     Dosage: 137.7 MG, UNK
     Route: 065
     Dates: start: 20140728, end: 20140728
  24. PANTOZOL [Concomitant]
     Active Substance: PANTOPRAZOLE SODIUM
     Indication: PRODUCT USED FOR UNKNOWN INDICATION
     Dosage: ()
     Route: 065
     Dates: start: 20140623, end: 20140704
  25. OXALIPLATIN. [Suspect]
     Active Substance: OXALIPLATIN
     Indication: COLORECTAL CANCER
     Dosage: LAST DOSE PRIOR TO SENSORY POLYNEUROPATHY: 02/JAN/2014 (137.7 MG)
     Route: 065
     Dates: start: 20131108
  26. FOLINIC ACID [Concomitant]
     Active Substance: LEUCOVORIN
     Dosage: 162 MG, UNK
     Route: 065
     Dates: start: 20140825, end: 20140825
  27. BERODUAL [Concomitant]
     Active Substance: FENOTEROL HYDROBROMIDE\IPRATROPIUM BROMIDE
     Indication: PNEUMONITIS
     Dosage: ()
     Route: 065
     Dates: start: 20140124, end: 20140201
  28. LEVOFLOXACIN. [Concomitant]
     Active Substance: LEVOFLOXACIN
     Indication: PYREXIA
     Dosage: ()
     Route: 065
     Dates: start: 20140120, end: 20140122
  29. PIPERACILLIN/TAZOBACTAM [Concomitant]
     Active Substance: PIPERACILLIN SODIUM\TAZOBACTAM SODIUM
     Indication: FEBRILE INFECTION
     Dosage: ()
     Route: 065
     Dates: start: 20140123, end: 20140129
  30. FOLINIC ACID [Concomitant]
     Active Substance: LEUCOVORIN
     Indication: COLORECTAL CANCER
     Dosage: 336 MG, UNK
     Route: 065
     Dates: start: 20131108, end: 20131108
  31. FOLINIC ACID [Concomitant]
     Active Substance: LEUCOVORIN
     Dosage: 243 MG, UNK
     Route: 065
     Dates: start: 20140714, end: 20140728
  32. CLEXANE [Concomitant]
     Active Substance: ENOXAPARIN SODIUM
     Indication: THROMBOSIS PROPHYLAXIS
     Dosage: ()
     Route: 065
     Dates: start: 20140623, end: 20140707
  33. ACIC [Concomitant]
     Active Substance: ACYCLOVIR
     Indication: ORAL HERPES
     Route: 065
     Dates: start: 20140115, end: 20140120

REACTIONS (5)
  - Peripheral sensory neuropathy [Recovered/Resolved]
  - Pyrexia [Recovered/Resolved]
  - Infection [Recovered/Resolved]
  - Hepatitis toxic [Recovering/Resolving]
  - Pleural effusion [Not Recovered/Not Resolved]

NARRATIVE: CASE EVENT DATE: 20140102
